FAERS Safety Report 9102901 (Version 2)
Quarter: 2013Q1

REPORT INFORMATION
  Report Type: Report from Study
  Country: CA (occurrence: CA)
  Receive Date: 20130218
  Receipt Date: 20130221
  Transmission Date: 20140127
  Serious: Yes (Death, Other)
  Sender: FDA-Public Use
  Company Number: PHHY2013CA015187

PATIENT
  Sex: Female

DRUGS (5)
  1. CLOZARIL [Suspect]
     Indication: SCHIZOPHRENIA
     Dosage: 200 MG, AT BED TIME
     Route: 048
     Dates: start: 20100714
  2. CLOZARIL [Suspect]
     Dosage: UNK UKN, DOSE REDUCED
     Dates: start: 20120813
  3. SYNTHROID [Concomitant]
  4. ABILIFY [Concomitant]
     Dosage: 1 MG, UNK
     Dates: start: 20130111
  5. SEROQUEL [Concomitant]
     Dosage: UNK UKN, UNK
     Dates: end: 20130111

REACTIONS (2)
  - Lung infection [Fatal]
  - Fall [Unknown]
